FAERS Safety Report 8139080-9 (Version None)
Quarter: 2012Q1

REPORT INFORMATION
  Report Type: 
  Country: None (occurrence: None)
  Receive Date: 20120215
  Receipt Date: 20120208
  Transmission Date: 20120608
  Serious: Yes (Other)
  Sender: FDA-Public Use
  Company Number: US-ABBOTT-11P-163-0879485-00

PATIENT
  Sex: Male
  Weight: 81.266 kg

DRUGS (5)
  1. NORVASC [Concomitant]
     Indication: HYPERTENSION
     Dosage: 5 MG DAILY
     Dates: start: 20020101
  2. QUINAPRIL [Concomitant]
     Indication: HYPERTENSION
     Dosage: 5 MG DAILY
     Dates: start: 20020101
  3. VELCADE [Suspect]
     Indication: MULTIPLE MYELOMA
     Dates: start: 20110301
  4. LASIX [Concomitant]
     Indication: HYPERTENSION
  5. ANDROGEL [Suspect]
     Indication: BLOOD TESTOSTERONE DECREASED
     Route: 061
     Dates: start: 20080422

REACTIONS (4)
  - MULTIPLE MYELOMA [None]
  - NEUROPATHY PERIPHERAL [None]
  - RENAL FAILURE [None]
  - PROTEIN URINE PRESENT [None]
